FAERS Safety Report 9310931 (Version 1)
Quarter: 2013Q2

REPORT INFORMATION
  Report Type: Spontaneous
  Country: US (occurrence: None)
  Receive Date: 20130523
  Receipt Date: 20130523
  Transmission Date: 20140414
  Serious: Yes (Hospitalization, Disabling, Other)
  Sender: FDA-Public Use
  Company Number: None

PATIENT
  Age: 20 Year
  Sex: Female
  Weight: 47.63 kg

DRUGS (1)
  1. CELESTONE SOLUSPAN [Suspect]
     Dosage: ONE SHOT

REACTIONS (6)
  - Syncope [None]
  - Head injury [None]
  - Fall [None]
  - Laceration [None]
  - Haemorrhage [None]
  - Contusion [None]
